FAERS Safety Report 24045301 (Version 1)
Quarter: 2024Q3

REPORT INFORMATION
  Report Type: Report from Study
  Country: NL (occurrence: NL)
  Receive Date: 20240703
  Receipt Date: 20240703
  Transmission Date: 20241016
  Serious: Yes (Other)
  Sender: NORDIC PHARMA
  Company Number: NL-ABBVIE-5733454

PATIENT
  Age: 59 Year
  Sex: Female

DRUGS (7)
  1. METHOTREXATE [Suspect]
     Active Substance: METHOTREXATE
     Indication: Crohn^s disease
     Route: 065
  2. ADALIMUMAB [Concomitant]
     Active Substance: ADALIMUMAB\ISOPROPYL ALCOHOL
     Indication: Crohn^s disease
     Route: 058
  3. ADALIMUMAB [Concomitant]
     Active Substance: ADALIMUMAB\ISOPROPYL ALCOHOL
     Indication: Crohn^s disease
     Route: 058
  4. AZATHIOPRINE [Concomitant]
     Active Substance: AZATHIOPRINE
     Indication: Crohn^s disease
     Route: 065
     Dates: start: 2011
  5. RISANKIZUMAB [Concomitant]
     Active Substance: RISANKIZUMAB
     Indication: Crohn^s disease
     Route: 058
     Dates: start: 202310
  6. INFLIXIMAB [Concomitant]
     Active Substance: INFLIXIMAB
     Indication: Crohn^s disease
     Route: 065
     Dates: start: 2019
  7. USTEKINUMAB [Concomitant]
     Active Substance: USTEKINUMAB
     Indication: Crohn^s disease
     Route: 065

REACTIONS (12)
  - Ileocaecal resection [Unknown]
  - Headache [Unknown]
  - Sinusitis [Unknown]
  - Arthropathy [Recovered/Resolved]
  - Drug ineffective [Unknown]
  - Adverse drug reaction [Unknown]
  - Drug intolerance [Unknown]
  - Skin disorder [Recovered/Resolved]
  - Dyspnoea [Unknown]
  - Delirium [Recovered/Resolved]
  - Acute kidney injury [Unknown]
  - Tooth abscess [Unknown]

NARRATIVE: CASE EVENT DATE: 20200101
